FAERS Safety Report 15860506 (Version 1)
Quarter: 2019Q1

REPORT INFORMATION
  Report Type: Report from Study
  Country: None (occurrence: US)
  Receive Date: 20190123
  Receipt Date: 20190123
  Transmission Date: 20190417
  Serious: Yes (Hospitalization)
  Sender: FDA-Public Use
  Company Number: US-ABBVIE-19K-163-2631810-00

PATIENT
  Sex: Male

DRUGS (3)
  1. VENCLEXTA [Suspect]
     Active Substance: VENETOCLAX
     Indication: PLASMA CELL MYELOMA
     Dosage: 100-200 MG
     Route: 048
     Dates: start: 20181214
  2. VENCLEXTA [Suspect]
     Active Substance: VENETOCLAX
     Dosage: 100-200 MG
     Route: 048
  3. VENCLEXTA [Suspect]
     Active Substance: VENETOCLAX
     Dosage: 100-200 MG
     Route: 048

REACTIONS (3)
  - Diarrhoea [Unknown]
  - Full blood count decreased [Recovered/Resolved]
  - Dizziness [Unknown]
